FAERS Safety Report 7056463-9 (Version None)
Quarter: 2010Q4

REPORT INFORMATION
  Report Type: 
  Country: None (occurrence: None)
  Receive Date: 20101021
  Receipt Date: 20101012
  Transmission Date: 20110411
  Serious: Yes (Hospitalization)
  Sender: FDA-Public Use
  Company Number: GB-PFIZER INC-2010129770

PATIENT
  Age: 60 Year
  Sex: Female

DRUGS (16)
  1. SILDENAFIL CITRATE [Suspect]
     Indication: PULMONARY HYPERTENSION
     Dosage: 25 MG, UNK
     Route: 048
     Dates: start: 20100915
  2. AMPICILLIN SODIUM/SULBACTAM SODIUM [Suspect]
     Indication: PNEUMONIA
     Dosage: 625 MG, UNK
     Route: 048
     Dates: start: 20100928, end: 20101003
  3. AQUEOUS CREAM [Concomitant]
     Dosage: UNK
  4. ACETYLSALICYLIC ACID [Concomitant]
     Dosage: UNK
  5. BENDROFLUMETHIAZIDE [Concomitant]
     Dosage: UNK
  6. BUMETANIDE [Concomitant]
     Dosage: UNK
  7. CODEINE PHOSPHATE [Concomitant]
     Dosage: UNK
  8. IPRATROPIUM BROMIDE [Concomitant]
     Dosage: UNK
  9. LANSOPRAZOLE [Concomitant]
     Dosage: UNK
  10. PARACETAMOL [Concomitant]
     Dosage: UNK
  11. PAROXETINE [Concomitant]
     Dosage: UNK
  12. SALBUTAMOL [Concomitant]
     Dosage: UNK
  13. SALMETEROL [Concomitant]
     Dosage: UNK
  14. SODIUM BICARBONATE [Concomitant]
     Dosage: UNK
  15. TIOTROPIUM BROMIDE [Concomitant]
     Dosage: UNK
  16. ZOPICLONE [Concomitant]
     Dosage: UNK

REACTIONS (1)
  - DERMATITIS EXFOLIATIVE [None]
